FAERS Safety Report 5999661-5 (Version None)
Quarter: 2008Q4

REPORT INFORMATION
  Report Type: 
  Country: None (occurrence: None)
  Receive Date: 20081211
  Receipt Date: 20081211
  Transmission Date: 20090506
  Serious: Yes (Life-Threatening)
  Sender: FDA-Public Use
  Company Number: None

PATIENT
  Sex: Female
  Weight: 33.1126 kg

DRUGS (2)
  1. WELLBUTRIN SR [Suspect]
     Indication: ATTENTION DEFICIT/HYPERACTIVITY DISORDER
     Dosage: 100 MG QD
     Dates: start: 20080710
  2. WELLBUTRIN SR [Suspect]
     Indication: DEPRESSION
     Dosage: 100 MG QD
     Dates: start: 20080710

REACTIONS (7)
  - ABDOMINAL PAIN [None]
  - ARTHRALGIA [None]
  - CHEST PAIN [None]
  - FATIGUE [None]
  - RASH [None]
  - SERUM SICKNESS [None]
  - SWELLING [None]
